FAERS Safety Report 16814692 (Version 1)
Quarter: 2019Q3

REPORT INFORMATION
  Report Type: Spontaneous
  Country: GB (occurrence: GB)
  Receive Date: 20190917
  Receipt Date: 20190917
  Transmission Date: 20191005
  Serious: Yes (Other)
  Sender: FDA-Public Use
  Company Number: GB-ACCORD-155020

PATIENT
  Age: 77 Year
  Sex: Female
  Weight: 44 kg

DRUGS (6)
  1. CETIRIZINE [Concomitant]
     Active Substance: CETIRIZINE HYDROCHLORIDE
     Dates: start: 20190306
  2. METFORMIN [Concomitant]
     Active Substance: METFORMIN HYDROCHLORIDE
     Dates: start: 20190123
  3. CARMELLOSE [Concomitant]
     Dosage: APPLY TO BOTH EYES.
     Route: 047
     Dates: start: 20180820
  4. NAPROXEN. [Concomitant]
     Active Substance: NAPROXEN
     Dosage: UP TO TWICE A DAY AFTER FOOD
     Dates: start: 20190624, end: 20190701
  5. CALCIUM CARBONATE. [Concomitant]
     Active Substance: CALCIUM CARBONATE
     Dates: start: 20180820
  6. ATORVASTATIN/ATORVASTATIN CALCIUM [Suspect]
     Active Substance: ATORVASTATIN CALCIUM
     Indication: PRODUCT USED FOR UNKNOWN INDICATION
     Dates: start: 20190123

REACTIONS (2)
  - Muscle spasms [Recovering/Resolving]
  - Palpitations [Unknown]
